FAERS Safety Report 5760013-4 (Version None)
Quarter: 2008Q2

REPORT INFORMATION
  Report Type: 
  Country: None (occurrence: None)
  Receive Date: 20080605
  Receipt Date: 20080528
  Transmission Date: 20081010
  Serious: Yes (Death)
  Sender: FDA-Public Use
  Company Number: US-GENENTECH-261180

PATIENT
  Sex: Female

DRUGS (2)
  1. AVASTIN [Suspect]
     Indication: BREAST CANCER METASTATIC
     Dosage: 700 MG, Q2W
     Route: 042
  2. TAXOL [Concomitant]
     Indication: BREAST CANCER METASTATIC
     Dosage: 155 MG, 1/WEEK

REACTIONS (1)
  - AORTIC ANEURYSM [None]
